FAERS Safety Report 10698208 (Version 4)
Quarter: 2020Q1

REPORT INFORMATION
  Report Type: Report from Study
  Country: US (occurrence: US)
  Receive Date: 20150108
  Receipt Date: 20200302
  Transmission Date: 20200409
  Serious: Yes (Hospitalization, Other)
  Sender: FDA-Public Use
  Company Number: US-SA-2014SA179933

PATIENT
  Age: 48 Year
  Sex: Female

DRUGS (3)
  1. TERIFLUNOMIDE. [Suspect]
     Active Substance: TERIFLUNOMIDE
     Indication: MULTIPLE SCLEROSIS
     Dosage: 14 MG,QD
     Route: 048
     Dates: start: 20140715
  2. TERIFLUNOMIDE. [Suspect]
     Active Substance: TERIFLUNOMIDE
     Dosage: TOOK 2 TABLETS BY ACCIDENT
     Route: 048
     Dates: start: 20160201, end: 20160201
  3. TERIFLUNOMIDE. [Suspect]
     Active Substance: TERIFLUNOMIDE
     Dosage: 14 MG,QD
     Route: 048

REACTIONS (7)
  - Stress [Unknown]
  - Oedema peripheral [Unknown]
  - Extra dose administered [Unknown]
  - Decubitus ulcer [Not Recovered/Not Resolved]
  - Cystitis [Unknown]
  - Unevaluable event [Unknown]
  - Erythema [Unknown]

NARRATIVE: CASE EVENT DATE: 20160201
